FAERS Safety Report 5239630-6 (Version None)
Quarter: 2007Q1

REPORT INFORMATION
  Report Type: 
  Country: None (occurrence: None)
  Receive Date: 20070216
  Receipt Date: 20070206
  Transmission Date: 20070707
  Serious: Yes (Hospitalization)
  Sender: FDA-Public Use
  Company Number: FR-GLAXOSMITHKLINE-B0457248A

PATIENT
  Sex: Female

DRUGS (1)
  1. ZYBAN [Suspect]
     Dosage: 900MG CUMULATIVE DOSE
     Route: 048

REACTIONS (9)
  - DECREASED APPETITE [None]
  - DEPRESSION [None]
  - FAECALOMA [None]
  - HALLUCINATION [None]
  - INSOMNIA [None]
  - LOSS OF CONSCIOUSNESS [None]
  - SUBILEUS [None]
  - SUICIDAL IDEATION [None]
  - VERTIGO [None]
